FAERS Safety Report 24757153 (Version 1)
Quarter: 2024Q4

REPORT INFORMATION
  Report Type: Spontaneous
  Country: US (occurrence: US)
  Receive Date: 20241220
  Receipt Date: 20241220
  Transmission Date: 20250115
  Serious: No
  Sender: STRIDES
  Company Number: US-STRIDES ARCOLAB LIMITED-2024SP012823

PATIENT
  Age: 43 Year
  Sex: Female

DRUGS (7)
  1. METHOTREXATE [Suspect]
     Active Substance: METHOTREXATE
     Indication: Rheumatoid arthritis
     Dosage: UNK
     Route: 065
  2. COLCHICINE [Suspect]
     Active Substance: COLCHICINE
     Indication: Pericardial effusion
     Dosage: UNK
     Route: 065
  3. COLCHICINE [Suspect]
     Active Substance: COLCHICINE
     Indication: Cardiac tamponade
  4. COLCHICINE [Suspect]
     Active Substance: COLCHICINE
     Indication: Cholecystitis acute
  5. INDOMETHACIN [Concomitant]
     Active Substance: INDOMETHACIN
     Indication: Cholecystitis acute
     Dosage: UNK
     Route: 065
  6. INDOMETHACIN [Concomitant]
     Active Substance: INDOMETHACIN
     Indication: Cardiac tamponade
  7. INDOMETHACIN [Concomitant]
     Active Substance: INDOMETHACIN
     Indication: Pericardial effusion

REACTIONS (2)
  - Treatment noncompliance [Unknown]
  - Off label use [Unknown]
